FAERS Safety Report 21812502 (Version 1)
Quarter: 2022Q4

REPORT INFORMATION
  Report Type: Spontaneous
  Country: US (occurrence: None)
  Receive Date: 20221230
  Receipt Date: 20221230
  Transmission Date: 20230113
  Serious: No
  Sender: FDA-Public Use
  Company Number: None

PATIENT
  Sex: Female
  Weight: 84.82 kg

DRUGS (7)
  1. TEMOZOLOMIDE [Suspect]
     Active Substance: TEMOZOLOMIDE
     Indication: Brain neoplasm malignant
     Dosage: OTHER FREQUENCY : DAYS 1-5;?
     Route: 048
     Dates: start: 202205
  2. TEMOZOLOMIDE [Suspect]
     Active Substance: TEMOZOLOMIDE
     Indication: Brain neoplasm malignant
     Dosage: OTHER FREQUENCY : DAYS 1-5;?
     Route: 048
     Dates: start: 202205
  3. DEXAMETHASONE [Concomitant]
     Active Substance: DEXAMETHASONE
  4. ESOMEPRAZOLE [Concomitant]
     Active Substance: ESOMEPRAZOLE
  5. LEVETIRACETAM [Concomitant]
     Active Substance: LEVETIRACETAM
  6. TYLENOL [Concomitant]
     Active Substance: ACETAMINOPHEN
  7. ZINC OXIDE [Concomitant]
     Active Substance: ZINC OXIDE

REACTIONS (1)
  - Disease progression [None]
